FAERS Safety Report 18524825 (Version 2)
Quarter: 2020Q4

REPORT INFORMATION
  Report Type: Spontaneous
  Country: HR (occurrence: HR)
  Receive Date: 20201120
  Receipt Date: 20201125
  Transmission Date: 20210114
  Serious: Yes (Life-Threatening, Other)
  Sender: FDA-Public Use
  Company Number: HR-JNJFOC-20201125791

PATIENT
  Age: 81 Year
  Sex: Female
  Weight: 76 kg

DRUGS (4)
  1. CO PERINEVA [Concomitant]
     Active Substance: INDAPAMIDE\PERINDOPRIL ERBUMINE
     Indication: HYPERTONIA
     Dosage: DF = 4 MG PERINDOPRIL + 1.25 MG INDAPAMIDE
     Route: 048
  2. HALOPERIDOL. [Suspect]
     Active Substance: HALOPERIDOL
     Indication: DEMENTIA
     Dosage: 1/2 ,1/2 ,1
     Route: 048
     Dates: start: 20200920, end: 20201012
  3. QUETIAPINE                         /01270902/ [Concomitant]
     Active Substance: QUETIAPINE FUMARATE
     Indication: DEMENTIA
     Route: 048
     Dates: start: 20180313
  4. LASIX [Concomitant]
     Active Substance: FUROSEMIDE
     Indication: HYPERTONIA
     Dosage: 40 MG 1-S-D-D
     Route: 048

REACTIONS (1)
  - Tardive dyskinesia [Recovered/Resolved with Sequelae]

NARRATIVE: CASE EVENT DATE: 20200920
